FAERS Safety Report 9939576 (Version 1)
Quarter: 2014Q1

REPORT INFORMATION
  Report Type: Report from Study
  Country: US (occurrence: US)
  Receive Date: 20140303
  Receipt Date: 20140303
  Transmission Date: 20141002
  Serious: No
  Sender: FDA-Public Use
  Company Number: US-ABBVIE-13P-163-1033429-00

PATIENT
  Age: 40 Year
  Sex: Male
  Weight: 118.04 kg

DRUGS (4)
  1. HUMIRA [Suspect]
     Indication: PSORIASIS
     Dates: start: 20121217
  2. XANAX [Concomitant]
     Indication: ANXIETY
  3. NIASPAN [Concomitant]
     Indication: BLOOD CHOLESTEROL INCREASED
  4. PRISTIQ [Concomitant]
     Indication: DEPRESSION

REACTIONS (2)
  - Chills [Recovered/Resolved]
  - Bronchitis [Recovered/Resolved]
